FAERS Safety Report 6828616-3 (Version None)
Quarter: 2010Q3

REPORT INFORMATION
  Report Type: 
  Country: None (occurrence: None)
  Receive Date: 20100709
  Receipt Date: 20070214
  Transmission Date: 20110219
  Serious: No
  Sender: FDA-Public Use
  Company Number: US-PFIZER INC-2007013001

PATIENT
  Sex: Male
  Weight: 73.94 kg

DRUGS (3)
  1. CHANTIX [Suspect]
     Indication: SMOKING CESSATION THERAPY
     Dates: start: 20061217
  2. NEXIUM [Concomitant]
     Indication: DYSPEPSIA
  3. ANTIDEPRESSANTS [Concomitant]
     Indication: DEPRESSION

REACTIONS (1)
  - ABDOMINAL DISTENSION [None]
